FAERS Safety Report 12172601 (Version 1)
Quarter: 2016Q1

REPORT INFORMATION
  Report Type: Spontaneous
  Country: VE (occurrence: VE)
  Receive Date: 20160311
  Receipt Date: 20160311
  Transmission Date: 20160526
  Serious: Yes (Other)
  Sender: FDA-Public Use
  Company Number: PHHY2016VE031851

PATIENT
  Sex: Female

DRUGS (3)
  1. FORADIL [Suspect]
     Active Substance: FORMOTEROL FUMARATE
     Indication: ASTHMA
     Dosage: 12 UG, QD
     Route: 055
  2. LOSARTAN. [Concomitant]
     Active Substance: LOSARTAN
     Indication: HYPERTENSION
     Dosage: 50 MG, QD
     Route: 065
  3. MIFLONIDE [Suspect]
     Active Substance: BUDESONIDE
     Indication: ASTHMA
     Dosage: 200 UG, QD
     Route: 055

REACTIONS (8)
  - Osteoarthritis [Unknown]
  - Arthralgia [Unknown]
  - Cough [Unknown]
  - Hypertensive cardiomyopathy [Unknown]
  - Varicose vein [Unknown]
  - Gait disturbance [Unknown]
  - Infarction [Unknown]
  - Choking [Unknown]
